FAERS Safety Report 9299362 (Version 2)
Quarter: 2013Q4

REPORT INFORMATION
  Report Type: Spontaneous
  Country: US (occurrence: US)
  Receive Date: 20130520
  Receipt Date: 20131105
  Transmission Date: 20140711
  Serious: Yes (Hospitalization, Other)
  Sender: FDA-Public Use
  Company Number: US-B.I. PHARMACEUTICALS,INC./RIDGEFIELD-2013-BI-13739BP

PATIENT
  Age: 81 Year
  Sex: Male
  Weight: 99.79 kg

DRUGS (10)
  1. PRADAXA [Suspect]
     Indication: ANTICOAGULANT THERAPY
     Dosage: 300 MG
     Dates: start: 20101211, end: 20110518
  2. PRADAXA [Suspect]
     Indication: ATRIAL FIBRILLATION
  3. TERAZOSIN [Concomitant]
  4. ZOCOR [Concomitant]
     Dosage: 40 MG
  5. LEVOTHYROXINE [Concomitant]
     Dosage: 75 MG
  6. FLOMAX [Concomitant]
     Dosage: 0.4 MG
  7. AMIODARONE [Concomitant]
  8. IBUPROFEN [Concomitant]
     Dosage: 2400 MG
  9. NEURONTIN [Concomitant]
     Indication: INTERVERTEBRAL DISC PROTRUSION
     Dosage: 900 MG
  10. PROZAC [Concomitant]
     Dosage: 20 MG

REACTIONS (8)
  - Hip fracture [Unknown]
  - Thrombocytopenia [Unknown]
  - Fall [Unknown]
  - Traumatic haemorrhage [Unknown]
  - Gastrointestinal haemorrhage [Unknown]
  - Haemorrhagic anaemia [Unknown]
  - Shock haemorrhagic [Unknown]
  - Coagulopathy [Unknown]
